FAERS Safety Report 16004878 (Version 1)
Quarter: 2019Q1

REPORT INFORMATION
  Report Type: Spontaneous
  Country: US (occurrence: US)
  Receive Date: 20190131
  Receipt Date: 20190131
  Transmission Date: 20190418
  Serious: No
  Sender: FDA-Public Use
  Company Number: None

PATIENT

DRUGS (1)
  1. OXYBUTYNIN EXTENDED RELEASE [Suspect]
     Active Substance: OXYBUTYNIN
     Route: 048

REACTIONS (3)
  - Wrong product administered [None]
  - Drug monitoring procedure not performed [None]
  - Drug dispensed to wrong patient [None]
